FAERS Safety Report 8413048-7 (Version None)
Quarter: 2012Q2

REPORT INFORMATION
  Report Type: 
  Country: None (occurrence: None)
  Receive Date: 20120323
  Receipt Date: 20110218
  Transmission Date: 20120825
  Serious: Yes (Other)
  Sender: FDA-Public Use
  Company Number: 163-21880-11022564

PATIENT
  Sex: Male

DRUGS (2)
  1. REVLIMID [Suspect]
     Indication: MULTIPLE MYELOMA
     Dosage: 15 MG, 3 IN 1 D, PO 10 MG, DAILY X 21 DAYS, PO
     Route: 048
     Dates: start: 20091201
  2. REVLIMID [Suspect]
     Indication: MULTIPLE MYELOMA
     Dosage: 15 MG, 3 IN 1 D, PO 10 MG, DAILY X 21 DAYS, PO
     Route: 048
     Dates: start: 20100801

REACTIONS (1)
  - RENAL FAILURE [None]
